FAERS Safety Report 9652825 (Version 3)
Quarter: 2013Q4

REPORT INFORMATION
  Report Type: Spontaneous
  Country: IT (occurrence: IT)
  Receive Date: 20131029
  Receipt Date: 20131210
  Transmission Date: 20140711
  Serious: Yes (Hospitalization)
  Sender: FDA-Public Use
  Company Number: PHHY2013IT118659

PATIENT
  Age: 82 Year
  Sex: Female

DRUGS (5)
  1. NIMESULIDE [Suspect]
     Indication: VENOUS ULCER PAIN
     Dosage: UNK
     Route: 048
     Dates: start: 20130925, end: 20130929
  2. CORDARONE [Suspect]
     Indication: ATRIAL FIBRILLATION
     Dosage: 1 OT, QD
     Route: 048
  3. COUMADIN [Suspect]
     Indication: ATRIAL FIBRILLATION
     Dosage: UNK
     Route: 048
     Dates: start: 20110101, end: 20130929
  4. COUMADIN [Suspect]
     Dosage: UNK
     Dates: start: 20131004
  5. LASIX [Concomitant]

REACTIONS (4)
  - Epistaxis [Recovered/Resolved]
  - Hypocoagulable state [Recovered/Resolved]
  - Drug interaction [Recovered/Resolved]
  - Anaemia [Recovered/Resolved]
